FAERS Safety Report 7142391-7 (Version None)
Quarter: 2010Q4

REPORT INFORMATION
  Report Type: 
  Country: None (occurrence: None)
  Receive Date: 20101117
  Receipt Date: 20100929
  Transmission Date: 20110411
  Serious: No
  Sender: FDA-Public Use
  Company Number: WAES 1010USA00037

PATIENT
  Sex: Male

DRUGS (2)
  1. ISENTRESS [Suspect]
     Indication: HIV INFECTION
     Dosage: 400 MG/PO
     Route: 048
  2. TRUVADA [Concomitant]

REACTIONS (1)
  - HALLUCINATION [None]
